FAERS Safety Report 9491899 (Version 2)
Quarter: 2013Q3

REPORT INFORMATION
  Report Type: Spontaneous
  Country: ES (occurrence: ES)
  Receive Date: 20130830
  Receipt Date: 20130830
  Transmission Date: 20140515
  Serious: Yes (Other)
  Sender: FDA-Public Use
  Company Number: ES-BAYER-2013-103668

PATIENT
  Age: 48 Year
  Sex: Female

DRUGS (3)
  1. BETAFERON [Suspect]
     Dosage: 1/4 OF THE TOTAL DOSE (DOSE ESCALATION)
     Dates: start: 20130820
  2. LYRICA [Concomitant]
     Indication: PAIN IN EXTREMITY
     Dosage: UNK UNK, BID
  3. IBUPROFEN [Concomitant]
     Indication: PAIN IN EXTREMITY

REACTIONS (4)
  - Multiple sclerosis relapse [None]
  - Pain in extremity [None]
  - Arthralgia [None]
  - Gait disturbance [None]
